FAERS Safety Report 5217903-0 (Version None)
Quarter: 2007Q1

REPORT INFORMATION
  Report Type: 
  Country: None (occurrence: None)
  Receive Date: 20061130
  Receipt Date: 20060731
  Transmission Date: 20070707
  Serious: Yes (Other)
  Sender: FDA-Public Use
  Company Number: US200608000458

PATIENT
  Age: 53 Year
  Sex: Female
  Weight: 72.1 kg

DRUGS (7)
  1. ZYPREXA [Suspect]
     Dates: start: 20010101, end: 20040101
  2. RISPERIDONE [Concomitant]
  3. BUPROPION HCL [Concomitant]
  4. CITALOPRAM HYDROBROMIDE [Concomitant]
  5. MIRTAZAPINE [Concomitant]
  6. NEFAZODONE HCL [Concomitant]
  7. SERTRALINE [Concomitant]

REACTIONS (3)
  - DIABETES MELLITUS [None]
  - HYPOTENSION [None]
  - PANCREATITIS [None]
